FAERS Safety Report 23576863 (Version 3)
Quarter: 2025Q1

REPORT INFORMATION
  Report Type: Spontaneous
  Country: US (occurrence: US)
  Receive Date: 20240228
  Receipt Date: 20250128
  Transmission Date: 20250409
  Serious: No
  Sender: PFIZER
  Company Number: US-PFIZER INC-PV202400027757

PATIENT
  Age: 71 Year
  Sex: Female

DRUGS (1)
  1. XELJANZ XR [Suspect]
     Active Substance: TOFACITINIB CITRATE

REACTIONS (12)
  - Pain in extremity [Unknown]
  - Arthralgia [Unknown]
  - Headache [Unknown]
  - Dizziness [Unknown]
  - Fatigue [Unknown]
  - Tinnitus [Unknown]
  - Chest discomfort [Unknown]
  - Nasal discomfort [Unknown]
  - Diarrhoea [Unknown]
  - Hypertension [Unknown]
  - Intentional dose omission [Unknown]
  - Product dose omission in error [Unknown]
